FAERS Safety Report 7056639-0 (Version None)
Quarter: 2010Q4

REPORT INFORMATION
  Report Type: 
  Country: None (occurrence: None)
  Receive Date: 20101004
  Receipt Date: 20100928
  Transmission Date: 20110411
  Serious: Yes (Other)
  Sender: FDA-Public Use
  Company Number: THYM-1001350

PATIENT

DRUGS (1)
  1. THYMOGLOBULIN [Suspect]
     Indication: BONE MARROW CONDITIONING REGIMEN
     Dosage: 10 MG/KG, INTRAVENOUS
     Route: 042

REACTIONS (5)
  - C-REACTIVE PROTEIN INCREASED [None]
  - PYREXIA [None]
  - RASH [None]
  - THERAPEUTIC RESPONSE DECREASED [None]
  - TRANSPLANT REJECTION [None]
